FAERS Safety Report 23732396 (Version 2)
Quarter: 2024Q2

REPORT INFORMATION
  Report Type: Report from Study
  Country: US (occurrence: US)
  Receive Date: 20240411
  Receipt Date: 20240524
  Transmission Date: 20240716
  Serious: Yes (Hospitalization, Other)
  Sender: FDA-Public Use
  Company Number: US-Eisai-EC-2024-161968

PATIENT
  Age: 68 Year
  Sex: Female

DRUGS (4)
  1. LENVIMA [Suspect]
     Active Substance: LENVATINIB
     Indication: Endometrial cancer
     Route: 048
     Dates: start: 20240301, end: 20240310
  2. LENVIMA [Suspect]
     Active Substance: LENVATINIB
     Dosage: INTERMITTENTLY
     Route: 048
     Dates: start: 20240311
  3. LENVIMA [Suspect]
     Active Substance: LENVATINIB
     Dosage: MISSED DOSE TWICE
     Route: 048
     Dates: start: 20240502
  4. KEYTRUDA [Concomitant]
     Active Substance: PEMBROLIZUMAB
     Indication: Endometrial cancer
     Dosage: DOSE AND FREQUENCY UNKNOWN

REACTIONS (11)
  - Pulmonary oedema [Unknown]
  - Cardiac failure congestive [Recovering/Resolving]
  - Malignant neoplasm progression [Unknown]
  - Hypertension [Recovering/Resolving]
  - Fatigue [Unknown]
  - Dysphonia [Unknown]
  - Anxiety [Unknown]
  - Nausea [Unknown]
  - Headache [Unknown]
  - Chest pain [Unknown]
  - Dyspnoea [Not Recovered/Not Resolved]

NARRATIVE: CASE EVENT DATE: 20240101
